FAERS Safety Report 24332393 (Version 1)
Quarter: 2024Q3

REPORT INFORMATION
  Report Type: Spontaneous
  Country: FR (occurrence: FR)
  Receive Date: 20240918
  Receipt Date: 20240918
  Transmission Date: 20241016
  Serious: Yes (Other)
  Sender: AUROBINDO
  Company Number: FR-BIOGARAN-B24001567

PATIENT
  Age: 71 Year
  Sex: Female
  Weight: 52 kg

DRUGS (5)
  1. BISOPROLOL [Suspect]
     Active Substance: BISOPROLOL\BISOPROLOL FUMARATE
     Indication: Product used for unknown indication
     Dosage: 1.25 MILLIGRAM, ONCE A DAY
     Route: 065
  2. KARDEGIC [Suspect]
     Active Substance: ASPIRIN DL-LYSINE
     Indication: Product used for unknown indication
     Dosage: 1 SACHET PER DAY
     Route: 065
  3. PRASUGREL BESYLATE [Suspect]
     Active Substance: PRASUGREL BESYLATE
     Indication: Product used for unknown indication
     Dosage: 0.5 DOSAGE FORM, QD
     Route: 048
     Dates: start: 2024, end: 2024
  4. PRASUGREL BESYLATE [Suspect]
     Active Substance: PRASUGREL BESYLATE
     Dosage: 1 TABLET PER DAY
     Route: 048
     Dates: start: 202402
  5. INSULIN NOS [Concomitant]
     Active Substance: INSULIN NOS
     Indication: Diabetes mellitus
     Dosage: 4 DOSAGE FORM, ONCE A DAY, 4 INJECTIONS PER DAY
     Route: 065

REACTIONS (10)
  - Haemorrhage [Unknown]
  - Malaise [Unknown]
  - Contusion [Recovering/Resolving]
  - Injection site haemorrhage [Unknown]
  - Incorrect dose administered [Unknown]
  - Intentional product misuse [Unknown]
  - Intentional product use issue [Unknown]
  - Electric shock sensation [Unknown]
  - Wrong technique in product usage process [Unknown]
  - Injection site bruising [Recovering/Resolving]
